FAERS Safety Report 7361823-2 (Version None)
Quarter: 2011Q1

REPORT INFORMATION
  Report Type: 
  Country: None (occurrence: None)
  Receive Date: 20110318
  Receipt Date: 20110308
  Transmission Date: 20110831
  Serious: Yes (Hospitalization, Other)
  Sender: FDA-Public Use
  Company Number: US-JNJFOC-20090608511

PATIENT
  Sex: Male
  Weight: 47.6 kg

DRUGS (8)
  1. ASPIRIN [Concomitant]
     Route: 048
  2. OMEPRAZOLE [Concomitant]
  3. MERCAPTOPURINE [Concomitant]
  4. PREDNISONE [Concomitant]
  5. PROTONIX [Concomitant]
  6. REMICADE [Suspect]
     Indication: CROHN'S DISEASE
     Route: 042
  7. REMICADE [Suspect]
     Route: 042
  8. CIPRO [Concomitant]

REACTIONS (1)
  - CROHN'S DISEASE [None]
